FAERS Safety Report 25956196 (Version 3)
Quarter: 2025Q4

REPORT INFORMATION
  Report Type: Spontaneous
  Country: US (occurrence: US)
  Receive Date: 20251024
  Receipt Date: 20251216
  Transmission Date: 20260118
  Serious: Yes (Other)
  Sender: MYLAN
  Company Number: US-MYLANLABS-2025M1089280

PATIENT
  Age: 10 Year
  Sex: Male
  Weight: 29.4 kg

DRUGS (8)
  1. TRIAMCINOLONE [Suspect]
     Active Substance: TRIAMCINOLONE
     Indication: Skin reaction
     Dosage: UNK, BID, THIN LAYER, DOSAGE MAINTAINED
     Dates: start: 2022, end: 2023
  2. CLOBETASOL [Suspect]
     Active Substance: CLOBETASOL
     Indication: Skin reaction
     Dosage: UNK
     Route: 048
  3. TREPROSTINIL [Concomitant]
     Active Substance: TREPROSTINIL
     Indication: Pulmonary hypertension
     Dosage: UNK
  4. TREPROSTINIL [Concomitant]
     Active Substance: TREPROSTINIL
     Indication: Pulmonary hypertension
     Dosage: UNK
  5. CHLORHEXIDINE [Concomitant]
     Active Substance: CHLORHEXIDINE
     Indication: Wound treatment
     Dosage: UNK, ADHESIVE BIOPATCH
  6. CHLORHEXIDINE GLUCONATE [Concomitant]
     Active Substance: CHLORHEXIDINE GLUCONATE
     Indication: Wound treatment
     Dosage: UNK, ADHESIVE
  7. CHLORHEXIDINE [Concomitant]
     Active Substance: CHLORHEXIDINE
     Indication: Infection prophylaxis
     Dosage: UNK
  8. POVIDONE-IODINE [Concomitant]
     Active Substance: POVIDONE-IODINE
     Indication: Infection prophylaxis
     Dosage: UNK

REACTIONS (1)
  - Therapy non-responder [Recovered/Resolved]
